FAERS Safety Report 8830692 (Version 2)
Quarter: 2012Q4

REPORT INFORMATION
  Report Type: 
  Country: FR (occurrence: FR)
  Receive Date: 20121009
  Receipt Date: 20121031
  Transmission Date: 20130627
  Serious: Yes (Death)
  Sender: FDA-Public Use
  Company Number: FR-ALEXION PHARMACEUTICALS INC.-A201201895

PATIENT
  Age: 2 Year
  Sex: Male

DRUGS (2)
  1. SOLIRIS 300MG [Suspect]
     Indication: HAEMOLYTIC URAEMIC SYNDROME
     Dosage: 600 mg, single
     Route: 042
     Dates: start: 20120927, end: 20120927
  2. AZITHROMYCIN [Concomitant]
     Indication: PROPHYLAXIS
     Dosage: UNK
     Dates: start: 20120926, end: 20120929

REACTIONS (2)
  - Brain oedema [Fatal]
  - Intracranial pressure increased [Fatal]
